FAERS Safety Report 10203286 (Version 2)
Quarter: 2014Q2

REPORT INFORMATION
  Report Type: Report from Study
  Country: GB (occurrence: GB)
  Receive Date: 20140529
  Receipt Date: 20140529
  Transmission Date: 20141212
  Serious: Yes (Hospitalization)
  Sender: FDA-Public Use
  Company Number: GB-ROCHE-1142661

PATIENT
  Age: 66 Year
  Sex: Male

DRUGS (19)
  1. OBINUTUZUMAB [Suspect]
     Indication: B-CELL LYMPHOMA
     Dosage: LAST DOSE PRIOR TO SAE: 19/SEP/2012,DOSE CONCENTRATION: 4 MG/ML
     Route: 042
     Dates: start: 20120228
  2. BENDAMUSTINE [Suspect]
     Indication: B-CELL LYMPHOMA
     Dosage: DOSE OF LAST BENDAMUSTINE TAKEN 127.5 MG, DATE OF MOST RECENT DOSE: 26 JUL 2012
     Route: 042
     Dates: start: 20120229
  3. DESMOPRESSIN [Concomitant]
     Indication: HYPOPITUITARISM
  4. FLUDROCORTISONE [Concomitant]
     Indication: HYPOPITUITARISM
  5. HYDROXOCOBALAMIN [Concomitant]
     Indication: IRON DEFICIENCY ANAEMIA
  6. GLICLAZIDE [Concomitant]
     Indication: TYPE 2 DIABETES MELLITUS
  7. METFORMIN [Concomitant]
     Indication: TYPE 2 DIABETES MELLITUS
  8. SUSTANON [Concomitant]
     Indication: HYPOPITUITARISM
  9. OMEPRAZOLE [Concomitant]
     Indication: PROPHYLAXIS AGAINST GASTROINTESTINAL ULCER
  10. LEVOTHYROXINE [Concomitant]
     Indication: HYPOTHYROIDISM
  11. PARACETAMOL [Concomitant]
     Route: 065
     Dates: start: 20120228
  12. CHLORPHENIRAMINE [Concomitant]
     Route: 065
     Dates: start: 20120228
  13. METOCLOPRAMIDE [Concomitant]
     Route: 065
     Dates: start: 20120229
  14. DEXAMETHASONE [Concomitant]
     Route: 065
     Dates: start: 20120229
  15. COTRIMOXAZOLE [Concomitant]
     Route: 065
     Dates: start: 20120229
  16. ACICLOVIR [Concomitant]
     Indication: VIRAL INFECTION
     Route: 065
     Dates: start: 20120229
  17. ALLOPURINOL [Concomitant]
     Indication: HYPERURICAEMIA
     Route: 065
     Dates: start: 20120229
  18. PREDNISOLONE [Concomitant]
     Route: 065
     Dates: start: 20120228
  19. ERYTHROMYCIN [Concomitant]
     Indication: PHARYNGITIS
     Route: 065
     Dates: start: 20120902, end: 20120919

REACTIONS (1)
  - Febrile neutropenia [Recovered/Resolved]
